FAERS Safety Report 23553679 (Version 1)
Quarter: 2024Q1

REPORT INFORMATION
  Report Type: Spontaneous
  Country: US (occurrence: None)
  Receive Date: 20240221
  Receipt Date: 20240221
  Transmission Date: 20240410
  Serious: Yes (unspecified)
  Sender: FDA-Public Use
  Company Number: None

PATIENT
  Age: 80 Year
  Sex: Female

DRUGS (17)
  1. ISOSORBIDE MONONITRATE [Suspect]
     Active Substance: ISOSORBIDE MONONITRATE
     Indication: Angina pectoris
     Dosage: FREQUENCY : TWICE A DAY;?
     Route: 048
     Dates: start: 20220606, end: 20230830
  2. ISOSORBIDE MONONITRATE [Suspect]
     Active Substance: ISOSORBIDE MONONITRATE
     Indication: Coronary artery occlusion
  3. NITROGLYCERIN TRANSDERMAL DELIVERY SYSTEM [Suspect]
     Active Substance: NITROGLYCERIN
  4. LOSARTAN [Concomitant]
     Active Substance: LOSARTAN
  5. HYDRALAZINE [Concomitant]
     Active Substance: HYDRALAZINE HYDROCHLORIDE
  6. Chlorthaldone [Concomitant]
  7. Potassium clr [Concomitant]
  8. NITROGLYCERIN [Concomitant]
     Active Substance: NITROGLYCERIN
  9. VITAMIN C [Concomitant]
     Active Substance: ASCORBIC ACID
  10. OMEGA 3 [Concomitant]
     Active Substance: CAPSAICIN
  11. FOLIC ACID [Concomitant]
     Active Substance: FOLIC ACID
  12. Multivitamin [Concomitant]
  13. MELATONIN [Concomitant]
     Active Substance: MELATONIN
  14. ASPIRIN [Concomitant]
     Active Substance: ASPIRIN
  15. TYLENOL [Concomitant]
     Active Substance: ACETAMINOPHEN
  16. PROBIOTICS NOS [Concomitant]
     Active Substance: PROBIOTICS NOS
  17. ATENOLOL [Concomitant]
     Active Substance: ATENOLOL

REACTIONS (11)
  - Myalgia [None]
  - Peripheral swelling [None]
  - Burning sensation [None]
  - Hypoaesthesia [None]
  - Paraesthesia [None]
  - Carpal tunnel syndrome [None]
  - Pain [None]
  - Erythema [None]
  - Therapy cessation [None]
  - Impaired driving ability [None]
  - Musculoskeletal disorder [None]

NARRATIVE: CASE EVENT DATE: 20220707
